FAERS Safety Report 9693881 (Version 3)
Quarter: 2013Q4

REPORT INFORMATION
  Report Type: Spontaneous
  Country: US (occurrence: US)
  Receive Date: 20131118
  Receipt Date: 20131125
  Transmission Date: 20140711
  Serious: Yes (Other)
  Sender: FDA-Public Use
  Company Number: US-ROCHE-GNE254465

PATIENT
  Age: 28 Year
  Sex: Female
  Weight: 90.8 kg

DRUGS (17)
  1. XOLAIR [Suspect]
     Indication: ASTHMA
     Dosage: 375 MG, Q2W
     Route: 058
     Dates: start: 20070628
  2. XOLAIR [Suspect]
     Dosage: 375 MG, Q2W
     Route: 058
     Dates: start: 20080107
  3. SINGULAIR [Concomitant]
     Indication: ASTHMA
     Dosage: 10 MG, QD
     Route: 048
     Dates: start: 1999
  4. SINGULAIR [Concomitant]
     Indication: HYPERSENSITIVITY
  5. ADVAIR [Concomitant]
     Indication: ASTHMA
     Dosage: UNK, BID
     Route: 055
     Dates: start: 1998
  6. ALBUTEROL [Concomitant]
     Indication: ASTHMA
     Dosage: UNK, PRN
     Route: 065
  7. CYMBALTA [Concomitant]
     Indication: DEPRESSION
     Dosage: UNK, QD
     Route: 065
  8. DUONEB [Concomitant]
     Indication: ASTHMA
     Dosage: UNK, QID
     Route: 055
     Dates: start: 1998
  9. ZANTAC [Concomitant]
     Indication: GASTROOESOPHAGEAL REFLUX DISEASE
     Dosage: 150 MG, QD
     Route: 048
     Dates: start: 1998
  10. NEXIUM [Concomitant]
     Indication: PRODUCT USED FOR UNKNOWN INDICATION
     Dosage: 40 MG, QD
     Route: 048
  11. ALLEGRA [Concomitant]
     Indication: HYPERSENSITIVITY
     Dosage: UNK, QD
     Route: 048
  12. AMITIZA [Concomitant]
     Indication: PREMEDICATION
  13. BENADRYL (UNITED STATES) [Concomitant]
     Indication: PREMEDICATION
     Dosage: UNK, UNK
     Route: 065
     Dates: start: 20070628
  14. ELAVIL (UNITED STATES) [Concomitant]
     Indication: DEPRESSION
     Dosage: 10 MG, UNK
     Route: 048
  15. LABETALOL [Concomitant]
     Indication: HYPERTENSION
     Dosage: 200 MG, BID
     Route: 048
     Dates: start: 2008
  16. ZEGERID OTC [Concomitant]
     Indication: GASTROOESOPHAGEAL REFLUX DISEASE
     Dosage: 40 MG, QD
     Route: 048
     Dates: start: 2008
  17. VENTOLIN [Concomitant]
     Indication: ASTHMA
     Dosage: 2 PUFF, UNK, DOSE=2 PUFF
     Route: 055
     Dates: start: 1998

REACTIONS (3)
  - Dyspnoea [Recovered/Resolved]
  - Pruritus [Unknown]
  - Throat tightness [Unknown]
